FAERS Safety Report 25385876 (Version 1)
Quarter: 2025Q2

REPORT INFORMATION
  Report Type: Spontaneous
  Country: ES (occurrence: ES)
  Receive Date: 20250602
  Receipt Date: 20250602
  Transmission Date: 20250717
  Serious: Yes (Hospitalization)
  Sender: TEVA
  Company Number: ES-TEVA-VS-3336654

PATIENT
  Age: 16 Year
  Sex: Male

DRUGS (2)
  1. LAMOTRIGINE [Suspect]
     Active Substance: LAMOTRIGINE
     Indication: Product used for unknown indication
     Route: 065
  2. PREDNISOLONE [Concomitant]
     Active Substance: PREDNISOLONE
     Indication: Sinusitis
     Route: 065

REACTIONS (3)
  - Drug-induced liver injury [Unknown]
  - Hepatocellular injury [Unknown]
  - Drug reaction with eosinophilia and systemic symptoms [Unknown]
